FAERS Safety Report 8990821 (Version 1)
Quarter: 2012Q4

REPORT INFORMATION
  Report Type: 
  Country: DE (occurrence: DE)
  Receive Date: 20121231
  Receipt Date: 20121231
  Transmission Date: 20130627
  Serious: Yes (Death, Life-Threatening, Disabling)
  Sender: FDA-Public Use
  Company Number: PHHY2012DE113052

PATIENT
  Age: 86 Year
  Sex: Female

DRUGS (14)
  1. EXELON PATCH [Suspect]
     Indication: VASCULAR DEMENTIA
     Dosage: 4.6 mg/ 24 hours
     Route: 062
     Dates: start: 20121127
  2. TORASEMIDE [Concomitant]
     Dosage: 10 mg, daily
     Route: 048
  3. METOPROLOL [Concomitant]
     Dosage: 50 mg, BID
     Route: 048
  4. ACETYLSALICYLIC ACID [Concomitant]
     Dosage: 300 mg, daily
     Route: 048
  5. L-THYROXIN [Concomitant]
     Dosage: 75 ug, daily
     Route: 048
  6. ALLOPURINOL [Concomitant]
     Dosage: 100 mg, daily
     Route: 048
  7. METAMIZOLE [Concomitant]
     Dosage: 500 mg, BID
     Route: 048
  8. TRIAMTERENE/HCTZ [Concomitant]
     Dosage: (25/50 mg, daily)
     Route: 048
  9. OMEPRAZOLE [Concomitant]
     Dosage: 40 mg, daily
     Route: 048
  10. RISPERIDON [Concomitant]
     Dosage: 1 mg, daily
  11. MELPERON [Concomitant]
     Dosage: 25 mg, daily
  12. ZOPICLON [Concomitant]
     Dosage: 7.5 mg, daily
  13. MOVICOL [Concomitant]
     Dosage: 0.5 DF, BID
  14. IBUPROFEN [Concomitant]
     Dosage: 600 mg, daily (if required up to TID)

REACTIONS (1)
  - Cerebrovascular accident [Fatal]
